FAERS Safety Report 14648079 (Version 2)
Quarter: 2019Q4

REPORT INFORMATION
  Report Type: Spontaneous
  Country: GB (occurrence: GB)
  Receive Date: 20180316
  Receipt Date: 20191218
  Transmission Date: 20200122
  Serious: Yes (Hospitalization)
  Sender: FDA-Public Use
  Company Number: PHHY2018GB024282

PATIENT
  Age: 40 Year
  Sex: Male
  Weight: 86.2 kg

DRUGS (4)
  1. COSENTYX [Suspect]
     Active Substance: SECUKINUMAB
     Indication: ANKYLOSING SPONDYLITIS
     Dosage: 150 MG, UNK
     Route: 058
     Dates: start: 20171027, end: 20180114
  2. PREDNESOL [Concomitant]
     Indication: COLITIS ULCERATIVE
     Dosage: 40 MG, QD
     Route: 048
  3. MESALAZOL [Concomitant]
     Indication: COLITIS ULCERATIVE
     Dosage: 2.4 G, QD
     Route: 048
  4. SERTRALIN [Concomitant]
     Active Substance: SERTRALINE HYDROCHLORIDE
     Indication: DEPRESSED MOOD
     Dosage: 100 MG, QD
     Route: 065

REACTIONS (3)
  - Colitis [Recovering/Resolving]
  - Depressed mood [Recovering/Resolving]
  - Mental disorder [Recovered/Resolved]
